FAERS Safety Report 24640696 (Version 3)
Quarter: 2025Q1

REPORT INFORMATION
  Report Type: Spontaneous
  Country: US (occurrence: US)
  Receive Date: 20241120
  Receipt Date: 20250111
  Transmission Date: 20250408
  Serious: Yes (Death, Hospitalization, Other)
  Sender: AUROBINDO
  Company Number: US-MLMSERVICE-20241031-PI243788-00178-1

PATIENT
  Age: 72 Year
  Sex: Female

DRUGS (14)
  1. AMOXICILLIN [Suspect]
     Active Substance: AMOXICILLIN
     Indication: Antibiotic therapy
     Dosage: 500 MILLIGRAM, 3 TIMES A DAY FOR 5 DAYS
     Route: 048
     Dates: start: 2021
  2. MOXIFLOXACIN [Suspect]
     Active Substance: MOXIFLOXACIN
     Indication: Antibiotic therapy
     Route: 048
     Dates: start: 2021
  3. PREDNISONE [Suspect]
     Active Substance: PREDNISONE
     Indication: Osteonecrosis of jaw
     Route: 065
  4. PREDNISONE [Suspect]
     Active Substance: PREDNISONE
     Dosage: 10 MILLIGRAM, EVERY WEEK
     Route: 065
  5. CARBOPLATIN [Suspect]
     Active Substance: CARBOPLATIN
     Indication: Osteonecrosis of jaw
     Route: 065
  6. AUGMENTIN [Suspect]
     Active Substance: AMOXICILLIN\CLAVULANATE POTASSIUM
     Indication: Antibiotic therapy
     Route: 065
     Dates: start: 2021
  7. BONIVA [Suspect]
     Active Substance: IBANDRONATE SODIUM
     Indication: Osteoporosis
     Route: 048
     Dates: start: 2011
  8. CEFTRIAXONE [Suspect]
     Active Substance: CEFTRIAXONE
     Indication: Antibiotic therapy
     Route: 042
  9. IBANDRONIC ACID [Suspect]
     Active Substance: IBANDRONIC ACID
     Indication: Osteoporosis
     Route: 048
  10. FLUOROURACIL [Suspect]
     Active Substance: FLUOROURACIL
     Indication: Osteonecrosis of jaw
     Route: 065
  11. LEUCOVORIN [Suspect]
     Active Substance: LEUCOVORIN\LEUCOVORIN CALCIUM
     Indication: Osteonecrosis of jaw
     Route: 065
  12. CHLORHEXIDINE GLUCONATE [Suspect]
     Active Substance: CHLORHEXIDINE GLUCONATE
     Indication: Incision site impaired healing
     Route: 048
  13. KEYTRUDA [Concomitant]
     Active Substance: PEMBROLIZUMAB
     Indication: Squamous cell carcinoma
     Route: 065
  14. DAPTOMYCIN [Concomitant]
     Active Substance: DAPTOMYCIN
     Indication: Antibiotic therapy
     Route: 065

REACTIONS (5)
  - Osteonecrosis of jaw [Fatal]
  - Osteomyelitis [Recovering/Resolving]
  - Oral mucosal hypertrophy [Recovering/Resolving]
  - Condition aggravated [Recovering/Resolving]
  - Drug ineffective [Unknown]

NARRATIVE: CASE EVENT DATE: 20200101
